FAERS Safety Report 5795995-8 (Version None)
Quarter: 2008Q3

REPORT INFORMATION
  Report Type: 
  Country: None (occurrence: None)
  Receive Date: 20080701
  Receipt Date: 20080618
  Transmission Date: 20090109
  Serious: Yes (Death)
  Sender: FDA-Public Use
  Company Number: IE-ROCHE-552452

PATIENT
  Age: 75 Year
  Sex: Female

DRUGS (9)
  1. XELODA [Suspect]
     Indication: DRUG USE FOR UNKNOWN INDICATION
     Route: 065
     Dates: start: 20071208
  2. LOSEC I.V. [Suspect]
     Route: 042
  3. VALOID [Suspect]
     Route: 042
  4. BROMAZEPAM [Concomitant]
  5. CENTYL K [Concomitant]
  6. CENTYL K [Concomitant]
  7. SOLPADOL [Concomitant]
  8. SOLPADOL [Concomitant]
  9. CELLULOSE [Concomitant]
     Dosage: DRUG: CELLULOSE EYE DROPS.

REACTIONS (6)
  - ANAPHYLACTIC REACTION [None]
  - CARDIAC ARREST [None]
  - LOSS OF CONSCIOUSNESS [None]
  - MALAISE [None]
  - VENTRICULAR FIBRILLATION [None]
  - VOMITING [None]
